FAERS Safety Report 14298971 (Version 1)
Quarter: 2017Q4

REPORT INFORMATION
  Report Type: Spontaneous
  Country: AU (occurrence: AU)
  Receive Date: 20171217
  Receipt Date: 20171217
  Transmission Date: 20180321
  Serious: Yes (Hospitalization, Disabling)
  Sender: FDA-Public Use
  Company Number: None

PATIENT
  Age: 48 Year
  Sex: Female
  Weight: 65 kg

DRUGS (1)
  1. ADVANTAN [Suspect]
     Active Substance: METHYLPREDNISOLONE ACEPONATE
     Indication: ECZEMA

REACTIONS (11)
  - Insomnia [None]
  - Skin burning sensation [None]
  - Erythema [None]
  - Lymphadenopathy [None]
  - Skin exfoliation [None]
  - Pruritus [None]
  - Weight decreased [None]
  - Oedema [None]
  - Alopecia [None]
  - Feeling cold [None]
  - Withdrawal syndrome [None]

NARRATIVE: CASE EVENT DATE: 20150201
